FAERS Safety Report 9541036 (Version 1)
Quarter: 2013Q3

REPORT INFORMATION
  Report Type: Spontaneous
  Country: ES (occurrence: ES)
  Receive Date: 20130922
  Receipt Date: 20130922
  Transmission Date: 20140515
  Serious: Yes (Other)
  Sender: FDA-Public Use
  Company Number: ES-MYLANLABS-2013S1020605

PATIENT
  Age: 38 Year
  Sex: Male

DRUGS (7)
  1. LEVOFLOXACIN [Suspect]
     Indication: EVIDENCE BASED TREATMENT
     Route: 048
     Dates: start: 20100111, end: 20100114
  2. LEVOFLOXACIN [Suspect]
     Indication: EVIDENCE BASED TREATMENT
     Dosage: 500 MG/DAY
     Route: 048
     Dates: start: 20100111, end: 20100114
  3. ESCITALOPRAM [Concomitant]
     Route: 065
  4. VALPROIC ACID [Concomitant]
     Route: 065
  5. PANTOPRAZOLE [Concomitant]
     Route: 065
  6. ARIPIPRAZOLE [Concomitant]
     Route: 065
  7. CLOZAPINE [Concomitant]
     Route: 065

REACTIONS (1)
  - Delirium [Recovered/Resolved]
